FAERS Safety Report 10501296 (Version 2)
Quarter: 2014Q4

REPORT INFORMATION
  Report Type: Spontaneous
  Country: SI (occurrence: SI)
  Receive Date: 20141007
  Receipt Date: 20141111
  Transmission Date: 20150528
  Serious: Yes (Other)
  Sender: FDA-Public Use
  Company Number: SI-AMGEN-SVNSP2014076463

PATIENT
  Age: 72 Year
  Sex: Male

DRUGS (9)
  1. TENORMIN [Concomitant]
     Active Substance: ATENOLOL
     Dosage: UNK
  2. TENZOPRIL [Concomitant]
     Dosage: UNK
  3. FOLACIN                            /00198401/ [Concomitant]
     Active Substance: FOLIC ACID
     Dosage: UNK
  4. PLIVIT D3 [Concomitant]
     Active Substance: CHOLECALCIFEROL
     Dosage: UNK
  5. METHYLPREDNISOLONE. [Suspect]
     Active Substance: METHYLPREDNISOLONE
     Indication: TEMPORAL ARTERITIS
     Dosage: UNK (HIGH DOSES)
     Route: 065
     Dates: start: 201001
  6. ENBREL [Suspect]
     Active Substance: ETANERCEPT
     Indication: PRODUCT USED FOR UNKNOWN INDICATION
     Dosage: UNK, WEEKLY
     Route: 065
     Dates: start: 2011
  7. METHYLPREDNISOLONE. [Suspect]
     Active Substance: METHYLPREDNISOLONE
     Dosage: UNK (DOSE REDUCED)
     Route: 065
  8. METHOTREXATE [Suspect]
     Active Substance: METHOTREXATE
     Indication: TEMPORAL ARTERITIS
     Dosage: UNK (HIGH DOSE)
     Route: 065
     Dates: start: 201005
  9. METHOTREXATE [Suspect]
     Active Substance: METHOTREXATE
     Dosage: UNK (DOSE REDUCED)
     Route: 065

REACTIONS (4)
  - Product use issue [Unknown]
  - Intraductal papillary mucinous neoplasm [Unknown]
  - Pancreatic cyst [Unknown]
  - Drug resistance [Unknown]
